FAERS Safety Report 25836147 (Version 1)
Quarter: 2025Q3

REPORT INFORMATION
  Report Type: Spontaneous
  Country: EU (occurrence: EU)
  Receive Date: 20250923
  Receipt Date: 20250923
  Transmission Date: 20251020
  Serious: Yes (Hospitalization)
  Sender: TEVA
  Company Number: None

PATIENT
  Age: 86 Year
  Sex: Male
  Weight: 91 kg

DRUGS (2)
  1. AMOXICILLIN [Suspect]
     Active Substance: AMOXICILLIN
     Indication: Pneumonia
     Dosage: 1G X3/DAY
     Route: 048
     Dates: start: 20250718, end: 20250727
  2. AMOXICILLIN [Suspect]
     Active Substance: AMOXICILLIN
     Indication: Pneumonia
     Dosage: 1G X3/DAY
     Route: 048
     Dates: start: 20250806, end: 20250811

REACTIONS (1)
  - Cutaneous vasculitis [Not Recovered/Not Resolved]

NARRATIVE: CASE EVENT DATE: 20250813
